FAERS Safety Report 20142370 (Version 1)
Quarter: 2021Q4

REPORT INFORMATION
  Report Type: Spontaneous
  Country: US (occurrence: US)
  Receive Date: 20211202
  Receipt Date: 20211202
  Transmission Date: 20220303
  Serious: Yes (Death, Life-Threatening, Other)
  Sender: FDA-Public Use
  Company Number: US-FRESENIUS KABI-FK202113246

PATIENT
  Age: 79 Year
  Sex: Male
  Weight: 86.8 kg

DRUGS (3)
  1. PROTAMINE SULFATE [Suspect]
     Active Substance: PROTAMINE SULFATE
     Indication: Procoagulant therapy
     Dosage: INFUSED SLOWLY VIA MICRO-DRIP OVER 10 MINUTES
     Route: 042
     Dates: start: 20211124
  2. PROTAMINE SULFATE [Suspect]
     Active Substance: PROTAMINE SULFATE
  3. HEPARIN SODIUM [Concomitant]
     Active Substance: HEPARIN SODIUM
     Indication: Anticoagulant therapy
     Route: 042
     Dates: start: 20211124

REACTIONS (3)
  - Aspiration [Fatal]
  - Intentional product use issue [Unknown]
  - Procedural hypotension [Unknown]

NARRATIVE: CASE EVENT DATE: 20211124
